FAERS Safety Report 10257743 (Version 1)
Quarter: 2014Q2

REPORT INFORMATION
  Report Type: Spontaneous
  Country: IE (occurrence: None)
  Receive Date: 20140620
  Receipt Date: 20140620
  Transmission Date: 20141212
  Serious: Yes (Death)
  Sender: FDA-Public Use
  Company Number: 2014IE00537

PATIENT
  Sex: 0

DRUGS (3)
  1. EPIRUBICIN (EPIRUBICIN HYDROCHLORIDE) INJECTION [Suspect]
     Dosage: 50 MG/M2 BODY SURFACE AREA GIVEN AS AN BOLUS ON DAY ONE,
     Route: 042
  2. OXALIPLATIN [Suspect]
     Dosage: 130 MG/M2 GIVEN AS A 2 HR INFUSION ON DAY ONE, INFUSION
  3. CAPECITABINE [Suspect]
     Dosage: 1,250 MG/M2/DAY GIVEN AS A TWICE DAILY ORAL DOSE OF 625 MG/M2 ON DAYS 1-21, ORAL
     Route: 048

REACTIONS (1)
  - Death [None]
